FAERS Safety Report 10662182 (Version 2)
Quarter: 2014Q4

REPORT INFORMATION
  Report Type: Report from Study
  Country: GB (occurrence: GB)
  Receive Date: 20141218
  Receipt Date: 20141218
  Transmission Date: 20150529
  Serious: Yes (Other)
  Sender: FDA-Public Use
  Company Number: GB-009507513-1411GBR005545

PATIENT
  Age: 66 Year
  Sex: Male
  Weight: 80 kg

DRUGS (12)
  1. NEFOPAM [Concomitant]
     Active Substance: NEFOPAM
     Dosage: 90 MG, QD
     Dates: start: 20110223
  2. PANCREATIN [Concomitant]
     Active Substance: PANCRELIPASE
     Dosage: 3 G, QD
     Dates: start: 20110304
  3. COLISTIN [Concomitant]
     Active Substance: COLISTIN
     Dosage: 400 MG, QD
     Dates: start: 20110208, end: 20110309
  4. NYSTATIN. [Concomitant]
     Active Substance: NYSTATIN
     Dosage: 14 ML, QD
     Dates: start: 20110208, end: 20110310
  5. ATENOLOL. [Concomitant]
     Active Substance: ATENOLOL
     Dosage: 50 MG, QD
     Dates: start: 20110222
  6. ACETAMINOPHEN. [Concomitant]
     Active Substance: ACETAMINOPHEN
     Dosage: 4 G, QD
     Dates: start: 20110218
  7. LANZOPRAZOL [Concomitant]
     Active Substance: LANSOPRAZOLE
     Dosage: 30 MG, QD
     Dates: start: 20110210
  8. ALBUTEROL SULFATE. [Concomitant]
     Active Substance: ALBUTEROL SULFATE
     Dosage: 8 MG, QPM
     Dates: start: 20110308
  9. SIMVASTATIN. [Suspect]
     Active Substance: SIMVASTATIN
     Indication: ACUTE RESPIRATORY DISTRESS SYNDROME
     Dosage: 80 MG, ONCE DAILY
     Route: 048
     Dates: start: 20110215, end: 20110306
  10. TINZAPARIN SODIUM [Concomitant]
     Active Substance: TINZAPARIN SODIUM
     Dosage: 3500 UNITS
     Dates: start: 20110209
  11. FENTANYL. [Concomitant]
     Active Substance: FENTANYL
     Dosage: 100 MG, QPM
     Dates: start: 20110309
  12. NEOMYCIN [Concomitant]
     Active Substance: NEOMYCIN
     Dosage: 4 G, QD
     Dates: start: 20110208, end: 20110309

REACTIONS (2)
  - Renal replacement therapy [Recovered/Resolved]
  - Blood creatine phosphokinase increased [Recovered/Resolved]

NARRATIVE: CASE EVENT DATE: 20110309
